FAERS Safety Report 19728084 (Version 1)
Quarter: 2021Q3

REPORT INFORMATION
  Report Type: Spontaneous
  Country: US (occurrence: US)
  Receive Date: 20210820
  Receipt Date: 20210820
  Transmission Date: 20211014
  Serious: No
  Sender: FDA-Public Use
  Company Number: US-ASTRAZENECA-2021A669931

PATIENT
  Sex: Female

DRUGS (22)
  1. CLONIDINE. [Concomitant]
     Active Substance: CLONIDINE
  2. DIAZEPAM. [Concomitant]
     Active Substance: DIAZEPAM
  3. FAMOTIDINE. [Concomitant]
     Active Substance: FAMOTIDINE
  4. DEXILANT [Concomitant]
     Active Substance: DEXLANSOPRAZOLE
  5. ANASTROZOLE. [Concomitant]
     Active Substance: ANASTROZOLE
  6. NEXIUM [Suspect]
     Active Substance: ESOMEPRAZOLE MAGNESIUM
     Route: 048
  7. PAXIL [Concomitant]
     Active Substance: PAROXETINE HYDROCHLORIDE
  8. ATORVASTATIN [Concomitant]
     Active Substance: ATORVASTATIN
  9. DESIPRAMINE [Concomitant]
     Active Substance: DESIPRAMINE
  10. NITROFURANTOIN. [Concomitant]
     Active Substance: NITROFURANTOIN
  11. PROMETHAZINE [Concomitant]
     Active Substance: PROMETHAZINE HYDROCHLORIDE
  12. BACLOFEN. [Concomitant]
     Active Substance: BACLOFEN
  13. SYNTHROID [Concomitant]
     Active Substance: LEVOTHYROXINE SODIUM
  14. ZOFRAN [Concomitant]
     Active Substance: ONDANSETRON HYDROCHLORIDE
  15. DONNATAL [Concomitant]
     Active Substance: ATROPINE SULFATE\HYOSCYAMINE SULFATE\PHENOBARBITAL\SCOPOLAMINE HYDROBROMIDE
  16. VITAMIN B12 [Concomitant]
     Active Substance: CYANOCOBALAMIN
  17. ESTRACE [Concomitant]
     Active Substance: ESTRADIOL
  18. NEURONTIN [Concomitant]
     Active Substance: GABAPENTIN
  19. ADDERALL [Concomitant]
     Active Substance: AMPHETAMINE ASPARTATE\AMPHETAMINE SULFATE\DEXTROAMPHETAMINE SACCHARATE\DEXTROAMPHETAMINE SULFATE
  20. PENTOXIFYLLINE. [Concomitant]
     Active Substance: PENTOXIFYLLINE
  21. TRIAMCINOLONE [Concomitant]
     Active Substance: TRIAMCINOLONE
  22. ACETONIDE [Concomitant]

REACTIONS (1)
  - Vitamin B12 decreased [Unknown]
